FAERS Safety Report 17917320 (Version 2)
Quarter: 2020Q4

REPORT INFORMATION
  Report Type: Spontaneous
  Country: US (occurrence: US)
  Receive Date: 20200619
  Receipt Date: 20201003
  Transmission Date: 20210113
  Serious: No
  Sender: FDA-Public Use
  Company Number: US-009507513-2006USA006471

PATIENT
  Sex: Female

DRUGS (1)
  1. NEXPLANON [Suspect]
     Active Substance: ETONOGESTREL
     Indication: CONTRACEPTION
     Dosage: 1 IMPLANT EVERY 3 YEARS, IN LEFT ARM
     Route: 059
     Dates: start: 20191004, end: 20200204

REACTIONS (2)
  - No adverse event [Unknown]
  - Maternal exposure during pregnancy [Unknown]
